FAERS Safety Report 8675133 (Version 3)
Quarter: 2012Q4

REPORT INFORMATION
  Report Type: Report from Study
  Country: DE (occurrence: DE)
  Receive Date: 20120720
  Receipt Date: 20121003
  Transmission Date: 20130627
  Serious: No
  Sender: FDA-Public Use
  Company Number: DE-BIOGENIDEC-2012BI016755

PATIENT
  Age: 50 Year
  Sex: Female

DRUGS (7)
  1. TYSABRI [Suspect]
     Indication: MULTIPLE SCLEROSIS
     Route: 042
     Dates: start: 20071121, end: 20111115
  2. MULTIVITAMINS [Concomitant]
     Indication: PRODUCT USED FOR UNKNOWN INDICATION
  3. ENALAPRIL [Concomitant]
     Indication: HYPERTENSION
     Route: 048
  4. LYRICA [Concomitant]
     Indication: PAIN
     Route: 048
  5. HCT [Concomitant]
     Indication: HYPERTENSION
     Route: 048
  6. OMEPRAZOL [Concomitant]
     Indication: PROPHYLAXIS
     Route: 048
  7. FERROSANOL [Concomitant]
     Indication: IRON DEFICIENCY

REACTIONS (1)
  - Myopathy [Unknown]
